FAERS Safety Report 26040006 (Version 1)
Quarter: 2025Q4

REPORT INFORMATION
  Report Type: Spontaneous
  Country: US (occurrence: US)
  Receive Date: 20251113
  Receipt Date: 20251113
  Transmission Date: 20260119
  Serious: No
  Sender: ABBVIE
  Company Number: US-ABBVIE-6538227

PATIENT
  Sex: Female

DRUGS (1)
  1. LASTACAFT [Suspect]
     Active Substance: ALCAFTADINE
     Indication: Product used for unknown indication
     Route: 047

REACTIONS (3)
  - Lacrimation increased [Unknown]
  - Ocular hyperaemia [Unknown]
  - Eye pruritus [Unknown]
